FAERS Safety Report 7825044-9 (Version None)
Quarter: 2011Q4

REPORT INFORMATION
  Report Type: 
  Country: None (occurrence: None)
  Receive Date: 20111019
  Receipt Date: 20110914
  Transmission Date: 20120403
  Serious: No
  Sender: FDA-Public Use
  Company Number: US-BRISTOL-MYERS SQUIBB COMPANY-15673999

PATIENT
  Age: 74 Year
  Sex: Male
  Weight: 66 kg

DRUGS (2)
  1. AMLODIPINE [Suspect]
     Dosage: DOSE INCREASED TO 10MG
  2. AVALIDE [Suspect]
     Dosage: DOSE INCREASED TO 150/12.5MG AND 300/12.5MG. FOR BATCH 0E62455A THE EXPIRY DATE IS JUN2013.
     Dates: start: 20050101

REACTIONS (1)
  - DRUG INEFFECTIVE [None]
